FAERS Safety Report 26063810 (Version 1)
Quarter: 2025Q4

REPORT INFORMATION
  Report Type: Spontaneous
  Country: EU (occurrence: EU)
  Receive Date: 20251119
  Receipt Date: 20251119
  Transmission Date: 20260117
  Serious: Yes (Death)
  Sender: CHEPLAPHARM
  Company Number: None

PATIENT
  Age: 64 Year
  Sex: Female

DRUGS (3)
  1. OLANZAPINE [Suspect]
     Active Substance: OLANZAPINE
     Dosage: TWO BLISTER PACKS
     Route: 048
     Dates: start: 202412, end: 202412
  2. LORMETAZEPAM [Suspect]
     Active Substance: LORMETAZEPAM
     Dosage: THREE BOXES OF 14 TABLETS OF LORMETAZEPAM 2 MG, ONE BOX OF 14 TABLETS OF LORMETAZEPAM 1 MG
     Route: 048
     Dates: start: 202412, end: 202412
  3. LORAZEPAM [Concomitant]
     Active Substance: LORAZEPAM

REACTIONS (2)
  - Poisoning deliberate [Fatal]
  - Overdose [Fatal]

NARRATIVE: CASE EVENT DATE: 20241201
